FAERS Safety Report 7574749-6 (Version None)
Quarter: 2011Q2

REPORT INFORMATION
  Report Type: 
  Country: None (occurrence: None)
  Receive Date: 20110627
  Receipt Date: 20110201
  Transmission Date: 20111010
  Serious: Yes (Hospitalization, Other)
  Sender: FDA-Public Use
  Company Number: US-BAYER-201035892NA

PATIENT
  Age: 37 Year
  Sex: Female
  Weight: 81.633 kg

DRUGS (15)
  1. YASMIN [Suspect]
     Dosage: UNK
     Dates: start: 20020224, end: 20030301
  2. LORTAB [Concomitant]
     Dosage: UNK
     Dates: start: 20040327
  3. ORTHO TRI-CYCLEN [Concomitant]
  4. YASMIN [Suspect]
     Indication: ACNE
     Dosage: UNK UNK, UNK
     Route: 048
     Dates: start: 20021224, end: 20030301
  5. ZOLPIDEM TARTRATE [Concomitant]
  6. ASCORBIC ACID [Concomitant]
     Dosage: UNK
     Dates: start: 20000101
  7. NSAID'S [Concomitant]
     Dosage: UNK
     Dates: start: 20000101
  8. TETRACYCLINE [Concomitant]
     Indication: ACNE
     Dosage: UNK
     Dates: start: 20030101, end: 20040101
  9. OLANZAPINE [Concomitant]
     Indication: SCHIZOPHRENIA
     Dosage: UNK
     Dates: start: 19980101, end: 20050101
  10. WELLBUTRIN [Concomitant]
     Indication: DEPRESSION
     Dosage: UNK
     Dates: start: 19990101
  11. ARIPIPRAZOLE [Concomitant]
  12. XENICAL [Concomitant]
  13. DIVALPROEX SODIUM [Concomitant]
  14. SEROQUEL [Concomitant]
  15. LEVOTHYROXINE SODIUM [Concomitant]
     Dosage: UNK
     Dates: start: 19990101

REACTIONS (3)
  - GALLBLADDER DISORDER [None]
  - CHOLECYSTITIS CHRONIC [None]
  - CHOLELITHIASIS [None]
